FAERS Safety Report 5324146-9 (Version None)
Quarter: 2007Q2

REPORT INFORMATION
  Report Type: 
  Country: None (occurrence: None)
  Receive Date: 20070514
  Receipt Date: 20070220
  Transmission Date: 20071010
  Serious: No
  Sender: FDA-Public Use
  Company Number: A0640270A

PATIENT
  Age: 79 Year
  Sex: Male

DRUGS (10)
  1. RELAFEN [Suspect]
     Indication: OSTEOARTHRITIS
     Dosage: 500MG PER DAY
     Route: 048
  2. SYNTHROID [Concomitant]
  3. CARDURA [Concomitant]
  4. PROSCAR [Concomitant]
  5. CARTIA XT [Concomitant]
  6. QUININE SULFATE [Concomitant]
  7. FOLIC ACID [Concomitant]
  8. ASPIRIN [Concomitant]
  9. MULTI-VITAMIN [Concomitant]
  10. CALCIUM CHLORIDE [Concomitant]

REACTIONS (1)
  - DIARRHOEA [None]
